FAERS Safety Report 10101486 (Version 2)
Quarter: 2014Q2

REPORT INFORMATION
  Report Type: Spontaneous
  Country: GB (occurrence: None)
  Receive Date: 20140422
  Receipt Date: 20140428
  Transmission Date: 20141212
  Serious: Yes (Other)
  Sender: FDA-Public Use
  Company Number: AUR-APL-2014-04700

PATIENT
  Age: 45 Year
  Sex: Male
  Weight: 127.4 kg

DRUGS (5)
  1. RAMIPRIL (RAMIPRIL) [Suspect]
     Indication: MYOCARDIAL INFARCTION
     Route: 048
  2. ASPIRIN (ACETYLSALICYIC ACID) [Concomitant]
  3. ATORVASTATIN (ATORVASTATIN) [Concomitant]
  4. BISOPROLOL (BISOPROLOL) [Concomitant]
  5. CITALOPRAM (CITALOPRAM) [Concomitant]

REACTIONS (1)
  - Enlarged uvula [None]
